FAERS Safety Report 10195267 (Version 1)
Quarter: 2014Q2

REPORT INFORMATION
  Report Type: Spontaneous
  Country: FI (occurrence: FI)
  Receive Date: 20140526
  Receipt Date: 20140526
  Transmission Date: 20141212
  Serious: Yes (Other)
  Sender: FDA-Public Use
  Company Number: FI-BRISTOL-MYERS SQUIBB COMPANY-20787925

PATIENT
  Age: 55 Year
  Sex: Male

DRUGS (4)
  1. ABILIFY [Suspect]
     Indication: DEPRESSION
     Dosage: FROM UNK.DATE INCREASED TO 7.5MG/DAY?ONGOING
  2. KETIPINOR [Concomitant]
  3. MIRTAZAPINE [Concomitant]
  4. CIPRAMIL [Concomitant]

REACTIONS (4)
  - Mania [Unknown]
  - Euphoric mood [Unknown]
  - Logorrhoea [Unknown]
  - Off label use [Unknown]
